FAERS Safety Report 6418376-2 (Version None)
Quarter: 2009Q4

REPORT INFORMATION
  Report Type: 
  Country: None (occurrence: None)
  Receive Date: 20091021
  Receipt Date: 20090727
  Transmission Date: 20100525
  Serious: No
  Sender: FDA-Public Use
  Company Number: ALL1-2009-01774

PATIENT
  Age: 11 Year
  Sex: Male
  Weight: 38.5 kg

DRUGS (2)
  1. VYVANSE [Suspect]
     Indication: ATTENTION DEFICIT/HYPERACTIVITY DISORDER
     Dosage: 1X/DAY:QD, ORAL : 60 MG, 1X/DAY:QD, ORAL
     Route: 048
     Dates: start: 20070101, end: 20070605
  2. VYVANSE [Suspect]
     Indication: ATTENTION DEFICIT/HYPERACTIVITY DISORDER
     Dosage: 1X/DAY:QD, ORAL : 60 MG, 1X/DAY:QD, ORAL
     Route: 048
     Dates: start: 20070606

REACTIONS (2)
  - ALOPECIA [None]
  - TRICHOTILLOMANIA [None]
